FAERS Safety Report 5955935-5 (Version None)
Quarter: 2008Q4

REPORT INFORMATION
  Report Type: 
  Country: None (occurrence: None)
  Receive Date: 20081112
  Receipt Date: 20081031
  Transmission Date: 20090506
  Serious: Yes (Hospitalization, Other)
  Sender: FDA-Public Use
  Company Number: 237052J08USA

PATIENT
  Age: 67 Year
  Sex: Female
  Weight: 68 kg

DRUGS (11)
  1. REBIF [Suspect]
     Indication: MULTIPLE SCLEROSIS
     Dosage: 8.8MCG, 3 IN 1 WEEKS, SUBCUTANEOUS
     Route: 058
     Dates: start: 20070125
  2. LEVAQUIN [Concomitant]
  3. TRIMPEX [Concomitant]
  4. AMOXICILLIN [Concomitant]
  5. IMODIUM [Concomitant]
  6. LEVOXYL [Concomitant]
  7. NEXIUM [Concomitant]
  8. BACLOFEN [Concomitant]
  9. PLAVIX [Concomitant]
  10. QUESTRAN [Concomitant]
  11. CYMBALTA [Concomitant]

REACTIONS (9)
  - BRONCHITIS [None]
  - CLOSTRIDIUM DIFFICILE COLITIS [None]
  - COLITIS ISCHAEMIC [None]
  - CONDITION AGGRAVATED [None]
  - HAEMORRHOIDAL HAEMORRHAGE [None]
  - MULTIPLE SCLEROSIS [None]
  - MUSCULAR WEAKNESS [None]
  - PYREXIA [None]
  - WALKING AID USER [None]
